FAERS Safety Report 21220829 (Version 1)
Quarter: 2022Q3

REPORT INFORMATION
  Report Type: Spontaneous
  Country: US (occurrence: US)
  Receive Date: 20220817
  Receipt Date: 20220817
  Transmission Date: 20221026
  Serious: Yes (Congenital Anomaly)
  Sender: FDA-Public Use
  Company Number: US-ELI_LILLY_AND_COMPANY-US202208003913

PATIENT

DRUGS (12)
  1. EMGALITY [Suspect]
     Active Substance: GALCANEZUMAB-GNLM
     Indication: Migraine prophylaxis
     Dosage: UNK UNK, MONTHLY (1/M)
     Route: 058
     Dates: start: 202201, end: 202204
  2. EMGALITY [Suspect]
     Active Substance: GALCANEZUMAB-GNLM
     Indication: Migraine prophylaxis
     Dosage: UNK UNK, MONTHLY (1/M)
     Route: 058
     Dates: start: 202201, end: 202204
  3. AMITRIPTYLINE [Concomitant]
     Active Substance: AMITRIPTYLINE
     Indication: Migraine
     Dosage: 25 MG, DAILY
     Route: 048
     Dates: start: 2019
  4. AMITRIPTYLINE [Concomitant]
     Active Substance: AMITRIPTYLINE
     Indication: Migraine
     Dosage: 25 MG, DAILY
     Route: 048
     Dates: start: 2019
  5. PRISTIQ EXTENDED-RELEASE [Concomitant]
     Active Substance: DESVENLAFAXINE SUCCINATE
     Indication: Depression
  6. PRISTIQ EXTENDED-RELEASE [Concomitant]
     Active Substance: DESVENLAFAXINE SUCCINATE
     Indication: Depression
  7. PRISTIQ EXTENDED-RELEASE [Concomitant]
     Active Substance: DESVENLAFAXINE SUCCINATE
     Indication: Anxiety
  8. PRISTIQ EXTENDED-RELEASE [Concomitant]
     Active Substance: DESVENLAFAXINE SUCCINATE
     Indication: Anxiety
  9. HUMIRA [Concomitant]
     Active Substance: ADALIMUMAB
     Indication: Psoriasis
     Dosage: UNK, 2/M
     Route: 058
     Dates: start: 2019
  10. HUMIRA [Concomitant]
     Active Substance: ADALIMUMAB
     Indication: Psoriasis
     Dosage: UNK, 2/M
     Route: 058
     Dates: start: 2019
  11. IRON [Concomitant]
     Active Substance: IRON
     Indication: Thalassaemia
  12. IRON [Concomitant]
     Active Substance: IRON
     Indication: Thalassaemia

REACTIONS (2)
  - Gastroschisis [Not Recovered/Not Resolved]
  - Foetal exposure during pregnancy [Unknown]

NARRATIVE: CASE EVENT DATE: 20220719
